FAERS Safety Report 7257901-9 (Version None)
Quarter: 2011Q1

REPORT INFORMATION
  Report Type: 
  Country: None (occurrence: None)
  Receive Date: 20110129
  Receipt Date: 20100604
  Transmission Date: 20110831
  Serious: No
  Sender: FDA-Public Use
  Company Number: US-ABBOTT-10P-163-0649739-00

PATIENT
  Sex: Female
  Weight: 103.06 kg

DRUGS (8)
  1. HYLORONIC ACID/FISH OIL [Concomitant]
     Indication: ACCIDENT
  2. METHOTREXATE [Concomitant]
     Indication: RHEUMATOID ARTHRITIS
     Route: 050
  3. CALCIUM WITH VITAMIN D [Concomitant]
     Indication: PRODUCT USED FOR UNKNOWN INDICATION
  4. HYLORONIC ACID/FISH OIL [Concomitant]
     Indication: ARTHRALGIA
     Route: 048
  5. TOPAMAX [Concomitant]
     Indication: MIGRAINE
  6. HUMIRA [Suspect]
     Indication: RHEUMATOID ARTHRITIS
     Route: 058
  7. LEVOXYL [Concomitant]
     Indication: THYROID DISORDER
  8. MULTI-VITAMIN [Concomitant]
     Indication: PRODUCT USED FOR UNKNOWN INDICATION

REACTIONS (5)
  - BRONCHITIS [None]
  - ARTHRALGIA [None]
  - JOINT STIFFNESS [None]
  - INAPPROPRIATE SCHEDULE OF DRUG ADMINISTRATION [None]
  - JOINT SWELLING [None]
